FAERS Safety Report 13535706 (Version 1)
Quarter: 2017Q2

REPORT INFORMATION
  Report Type: Spontaneous
  Country: US (occurrence: US)
  Receive Date: 20170511
  Receipt Date: 20170511
  Transmission Date: 20170830
  Serious: Yes (Hospitalization, Other)
  Sender: FDA-Public Use
  Company Number: US-APOTEX-2017AP011735

PATIENT
  Age: 17 Year
  Sex: Female

DRUGS (3)
  1. ALBUTEROL SULFATE INHALATION SOLUTION [Suspect]
     Active Substance: ALBUTEROL SULFATE
     Indication: DYSPNOEA
     Dosage: 20 MG PER HOUR/CUMULATIVE DOSE OF 3 G OF ALBUTEROL
     Route: 045
  2. ALBUTEROL SULFATE INHALATION SOLUTION [Suspect]
     Active Substance: ALBUTEROL SULFATE
     Dosage: CUMULATIVE DOSE OF 3 G OF ALBUTEROL
     Route: 045
  3. ALBUTEROL SULFATE INHALATION SOLUTION [Suspect]
     Active Substance: ALBUTEROL SULFATE
     Dosage: 100 MCG/ML/CUMULATIVE DOSE OF 3 G OF ALBUTEROL
     Route: 045

REACTIONS (4)
  - Acute respiratory failure [Recovering/Resolving]
  - Respiratory distress [Recovering/Resolving]
  - Slow speech [Recovering/Resolving]
  - Status asthmaticus [Recovering/Resolving]
